FAERS Safety Report 6408281-X (Version None)
Quarter: 2009Q4

REPORT INFORMATION
  Report Type: 
  Country: None (occurrence: None)
  Receive Date: 20091021
  Receipt Date: 20091008
  Transmission Date: 20100525
  Serious: Yes (Other)
  Sender: FDA-Public Use
  Company Number: US-PFIZER INC-2009283096

PATIENT
  Sex: Female
  Weight: 59 kg

DRUGS (7)
  1. SERTRALINE HCL [Suspect]
     Indication: DEPRESSION
     Dates: start: 20090901, end: 20091005
  2. GABAPENTIN [Concomitant]
     Dosage: UNK
  3. PREVACID [Concomitant]
     Dosage: UNK
  4. TRAZODONE HYDROCHLORIDE [Concomitant]
     Dosage: UNK
  5. ETHINYL ESTRADIOL/FERROUS FUMARATE/NORETHINDRONE ACETATE [Concomitant]
     Dosage: UNK
  6. CYCLOSPORINE [Concomitant]
     Dosage: UNK
     Route: 047
  7. FLONASE [Concomitant]

REACTIONS (7)
  - ABDOMINAL DISTENSION [None]
  - ABDOMINAL PAIN [None]
  - ANTIBODY TEST POSITIVE [None]
  - COELIAC DISEASE [None]
  - DIARRHOEA [None]
  - FREQUENT BOWEL MOVEMENTS [None]
  - NAUSEA [None]
